FAERS Safety Report 23414783 (Version 2)
Quarter: 2024Q1

REPORT INFORMATION
  Report Type: Spontaneous
  Country: US (occurrence: US)
  Receive Date: 20240118
  Receipt Date: 20240313
  Transmission Date: 20240409
  Serious: Yes (Death)
  Sender: FDA-Public Use
  Company Number: US-BoehringerIngelheim-2024-BI-002648

PATIENT
  Age: 83 Year
  Sex: Male

DRUGS (1)
  1. OLODATEROL HYDROCHLORIDE\TIOTROPIUM BROMIDE MONOHYDRATE [Suspect]
     Active Substance: OLODATEROL HYDROCHLORIDE\TIOTROPIUM BROMIDE MONOHYDRATE
     Indication: Product used for unknown indication
     Dosage: 2 PUFFS
     Route: 055
     Dates: start: 20190101

REACTIONS (4)
  - Death [Fatal]
  - Dyspnoea [Unknown]
  - Dysphagia [Unknown]
  - Organ failure [Unknown]

NARRATIVE: CASE EVENT DATE: 20231129
